FAERS Safety Report 7208614-0 (Version None)
Quarter: 2011Q1

REPORT INFORMATION
  Report Type: 
  Country: None (occurrence: None)
  Receive Date: 20110104
  Receipt Date: 20101229
  Transmission Date: 20110831
  Serious: Yes (Other)
  Sender: FDA-Public Use
  Company Number: CA-ROCHE-706642

PATIENT
  Sex: Female
  Weight: 67 kg

DRUGS (7)
  1. CIPRALEX [Concomitant]
     Dosage: DRUG REPORTED AS CIPROLEX
  2. DEXAMETHASONE [Concomitant]
  3. LIPITOR [Concomitant]
  4. OLANZAPINE [Concomitant]
  5. BEVACIZUMAB [Suspect]
     Dosage: FORM: INFUSION, DOSE INCREASED
     Route: 042
     Dates: start: 20101202
  6. BEVACIZUMAB [Suspect]
     Indication: GLIOBLASTOMA
     Dosage: FORM: INFUSION
     Route: 042
     Dates: start: 20100513
  7. DEXAMETHASONE [Concomitant]

REACTIONS (20)
  - RHINORRHOEA [None]
  - CHEST DISCOMFORT [None]
  - DYSARTHRIA [None]
  - SPEECH DISORDER [None]
  - ANXIETY [None]
  - DISORIENTATION [None]
  - CUSHINGOID [None]
  - HYPERTENSION [None]
  - APHASIA [None]
  - NASOPHARYNGITIS [None]
  - PHOTOPSIA [None]
  - DYSPHAGIA [None]
  - DIARRHOEA [None]
  - NASAL DRYNESS [None]
  - VISION BLURRED [None]
  - DIZZINESS [None]
  - VISUAL IMPAIRMENT [None]
  - URINARY HESITATION [None]
  - ABDOMINAL PAIN UPPER [None]
  - HEADACHE [None]
